FAERS Safety Report 8695591 (Version 3)
Quarter: 2012Q4

REPORT INFORMATION
  Report Type: Report from Study
  Country: CL (occurrence: CL)
  Receive Date: 20120731
  Receipt Date: 20121105
  Transmission Date: 20130627
  Serious: Yes (Life-Threatening, Hospitalization)
  Sender: FDA-Public Use
  Company Number: CL-ABBOTT-12P-034-0961421-01

PATIENT
  Age: 45 Year
  Sex: Male
  Weight: 87 kg

DRUGS (7)
  1. KALETRA TABLETS [Suspect]
     Indication: HIV INFECTION
     Dosage: 400/100 BID
     Route: 048
     Dates: start: 20120127
  2. 3TC [Concomitant]
     Indication: HIV INFECTION
     Route: 048
     Dates: start: 20120127
  3. VALPROIC ACID [Concomitant]
     Indication: PRODUCT USED FOR UNKNOWN INDICATION
     Route: 048
     Dates: start: 2010
  4. ESCITALOPRAM [Concomitant]
     Indication: PRODUCT USED FOR UNKNOWN INDICATION
     Route: 048
     Dates: start: 2006
  5. CLOTIAZEPAM [Concomitant]
     Indication: PRODUCT USED FOR UNKNOWN INDICATION
     Route: 048
     Dates: start: 2010
  6. ACYCLOVIR [Concomitant]
     Indication: PRODUCT USED FOR UNKNOWN INDICATION
     Route: 048
     Dates: start: 20120720, end: 20120724
  7. FLEMAR [Concomitant]
     Indication: PRODUCT USED FOR UNKNOWN INDICATION

REACTIONS (1)
  - Asthmatic crisis [Recovered/Resolved]
